FAERS Safety Report 6960763-8 (Version None)
Quarter: 2010Q3

REPORT INFORMATION
  Report Type: 
  Country: None (occurrence: None)
  Receive Date: 20100817
  Receipt Date: 20100125
  Transmission Date: 20110219
  Serious: No
  Sender: FDA-Public Use
  Company Number: 20107997

PATIENT
  Age: 42 Year
  Sex: Male

DRUGS (1)
  1. LIORESAL [Suspect]
     Indication: MUSCLE SPASTICITY
     Dosage: 824.7 - 899.1 MCG, DAILY, INTRATHECAL
     Route: 037

REACTIONS (1)
  - MUSCLE SPASTICITY [None]
